FAERS Safety Report 6314617-0 (Version None)
Quarter: 2009Q3

REPORT INFORMATION
  Report Type: 
  Country: None (occurrence: None)
  Receive Date: 20090817
  Receipt Date: 20090817
  Transmission Date: 20100115
  Serious: No
  Sender: FDA-Public Use
  Company Number: None

PATIENT
  Age: 74 Year
  Sex: Female
  Weight: 68.03 kg

DRUGS (1)
  1. RANITIDINE HCL [Suspect]
     Indication: GASTROOESOPHAGEAL REFLUX DISEASE
     Dosage: 150MG, QD, ORAL (047)
     Route: 048
     Dates: start: 20090706, end: 20090720

REACTIONS (3)
  - APHTHOUS STOMATITIS [None]
  - DYSGEUSIA [None]
  - ORAL DISCOMFORT [None]
